FAERS Safety Report 16014790 (Version 1)
Quarter: 2019Q1

REPORT INFORMATION
  Report Type: Report from Study
  Country: DE (occurrence: DE)
  Receive Date: 20190227
  Receipt Date: 20190227
  Transmission Date: 20190418
  Serious: Yes (Hospitalization, Other)
  Sender: FDA-Public Use
  Company Number: PHHY2016DE143736

PATIENT
  Sex: Female
  Weight: 55 kg

DRUGS (12)
  1. VOTRIENT [Suspect]
     Active Substance: PAZOPANIB HYDROCHLORIDE
     Indication: METASTATIC RENAL CELL CARCINOMA
     Dosage: 800 MG, QD
     Route: 048
     Dates: start: 20160826, end: 20170823
  2. MORPHINE SULFATE. [Concomitant]
     Active Substance: MORPHINE SULFATE
     Indication: TUMOUR PAIN
     Dosage: 20 MG, BID
     Route: 048
  3. MCP [Concomitant]
     Active Substance: METOCLOPRAMIDE HYDROCHLORIDE
     Indication: NAUSEA
     Dosage: 10 MG, TID
     Route: 048
  4. OPDIVO [Suspect]
     Active Substance: NIVOLUMAB
     Indication: METASTATIC RENAL CELL CARCINOMA
     Dosage: 3 MG/KG, UNK
     Route: 042
     Dates: start: 20171115, end: 20180206
  5. SALBUTAMOL AEROSOL ^RATIOPHARM^ [Concomitant]
     Indication: ASTHMA
     Dosage: 0.1 MG, PRN
     Route: 055
     Dates: start: 20060101
  6. CAPROS [Concomitant]
     Indication: TUMOUR PAIN
     Dosage: 10 MG, TID
     Route: 048
  7. VOTRIENT [Suspect]
     Active Substance: PAZOPANIB HYDROCHLORIDE
     Dosage: UNK
  8. BECLOMETASON-RATIOPHARM [Concomitant]
     Indication: ASTHMA
     Dosage: 0.2 MG, PRN
     Route: 055
     Dates: start: 20060101
  9. METAMIZOLE [Concomitant]
     Active Substance: METAMIZOLE
     Indication: TUMOUR PAIN
  10. VOTRIENT [Suspect]
     Active Substance: PAZOPANIB HYDROCHLORIDE
     Dosage: 800 MG, QD
     Route: 048
     Dates: start: 20170824, end: 20171109
  11. AFINITOR [Suspect]
     Active Substance: EVEROLIMUS
     Indication: METASTATIC RENAL CELL CARCINOMA
     Dosage: 10 MG, QD
     Route: 048
     Dates: start: 20180207, end: 20190113
  12. METAMIZOLE [Concomitant]
     Active Substance: METAMIZOLE
     Indication: PROPHYLAXIS
     Dosage: 750 MG, PRN
     Route: 048
     Dates: start: 20160701

REACTIONS (14)
  - Aspartate aminotransferase increased [Not Recovered/Not Resolved]
  - Constipation [Not Recovered/Not Resolved]
  - Back pain [Not Recovered/Not Resolved]
  - Gamma-glutamyltransferase increased [Not Recovered/Not Resolved]
  - Abscess jaw [Recovered/Resolved]
  - Blood thyroid stimulating hormone increased [Not Recovered/Not Resolved]
  - Weight decreased [Recovering/Resolving]
  - Hypertension [Not Recovered/Not Resolved]
  - Diarrhoea [Recovered/Resolved]
  - Hair colour changes [Not Recovered/Not Resolved]
  - Hepatic enzyme increased [Not Recovered/Not Resolved]
  - Blood lactate dehydrogenase increased [Recovering/Resolving]
  - Heart rate irregular [Unknown]
  - Blood alkaline phosphatase increased [Not Recovered/Not Resolved]

NARRATIVE: CASE EVENT DATE: 20160826
